FAERS Safety Report 22239127 (Version 1)
Quarter: 2023Q2

REPORT INFORMATION
  Report Type: Spontaneous
  Country: US (occurrence: None)
  Receive Date: 20230420
  Receipt Date: 20230420
  Transmission Date: 20230721
  Serious: Yes (Death)
  Sender: FDA-Public Use
  Company Number: None

PATIENT
  Age: 86 Year
  Sex: Male

DRUGS (1)
  1. ODOMZO [Suspect]
     Active Substance: SONIDEGIB
     Indication: Basal cell carcinoma
     Dosage: OTHER QUANTITY : 1 CAPSULE(S);?FREQUENCY : DAILY;?
     Route: 048
     Dates: start: 20221101, end: 20230308

REACTIONS (8)
  - Muscular weakness [None]
  - Renal failure [None]
  - Dehydration [None]
  - Dysphagia [None]
  - Weight decreased [None]
  - Somnolence [None]
  - Dementia [None]
  - Pneumonia aspiration [None]

NARRATIVE: CASE EVENT DATE: 20230401
